FAERS Safety Report 8953026 (Version 1)
Quarter: 2012Q4

REPORT INFORMATION
  Report Type: 
  Country: GB (occurrence: GB)
  Receive Date: 20121205
  Receipt Date: 20121205
  Transmission Date: 20130627
  Serious: Yes (Disabling)
  Sender: FDA-Public Use
  Company Number: GB-PFIZER INC-2012304606

PATIENT
  Age: 62 Year
  Sex: Female
  Weight: 69.85 kg

DRUGS (3)
  1. PREGABALIN [Suspect]
     Indication: CERVICAL SPONDYLOSIS
     Route: 048
     Dates: start: 20121115, end: 20121116
  2. PREMARIN [Concomitant]
  3. LEVOTHYROXINE SODIUM [Concomitant]

REACTIONS (7)
  - Vertigo [Recovered/Resolved with Sequelae]
  - Back pain [Recovered/Resolved with Sequelae]
  - Heart rate increased [Recovered/Resolved with Sequelae]
  - Neck pain [Recovered/Resolved with Sequelae]
  - Irritability [Recovered/Resolved with Sequelae]
  - Fatigue [Recovered/Resolved with Sequelae]
  - Eye pain [Unknown]
